APPROVED DRUG PRODUCT: LUMASON
Active Ingredient: SULFUR HEXAFLUORIDE LIPID-TYPE A MICROSPHERES
Strength: 60.7MG/25MG
Dosage Form/Route: FOR SUSPENSION;INTRAVENOUS
Application: N203684 | Product #001
Applicant: BRACCO DIAGNOSTICS INC
Approved: Oct 15, 2014 | RLD: Yes | RS: Yes | Type: RX

PATENTS:
Patent 11723869 | Expires: May 15, 2039
Patent 11723869 | Expires: May 15, 2039
Patent 11723869 | Expires: May 15, 2039
Patent 10232061 | Expires: Jul 6, 2038
Patent 10335502 | Expires: Jul 6, 2038